FAERS Safety Report 16944908 (Version 4)
Quarter: 2023Q1

REPORT INFORMATION
  Report Type: Report from Study
  Country: JP (occurrence: JP)
  Receive Date: 20191022
  Receipt Date: 20230126
  Transmission Date: 20230418
  Serious: Yes (Death, Hospitalization, Other)
  Sender: FDA-Public Use
  Company Number: JP-PFIZER INC-2019450364

PATIENT
  Age: 19 Year
  Sex: Male
  Weight: 36.4 kg

DRUGS (15)
  1. BESPONSA [Suspect]
     Active Substance: INOTUZUMAB OZOGAMICIN
     Indication: Acute lymphocytic leukaemia recurrent
     Dosage: 0.8 MG/M2, 1X/DAY, CYCLE 1
     Dates: start: 20190724, end: 20190724
  2. BESPONSA [Suspect]
     Active Substance: INOTUZUMAB OZOGAMICIN
     Dosage: 0.5 MG/M2, 1X/DAY, CYCLE 1
     Dates: start: 20190731, end: 20190731
  3. BESPONSA [Suspect]
     Active Substance: INOTUZUMAB OZOGAMICIN
     Dosage: 0.5 MG/M2, 1X/DAY, CYCLE 1
     Dates: start: 20190807, end: 20190807
  4. BESPONSA [Suspect]
     Active Substance: INOTUZUMAB OZOGAMICIN
     Dosage: 0.5 MG/M2, 1X/DAY, CYCLE 2
     Dates: start: 20190820, end: 20190820
  5. BESPONSA [Suspect]
     Active Substance: INOTUZUMAB OZOGAMICIN
     Dosage: 0.5 MG/M2, 1X/DAY, CYCLE 2
     Dates: start: 20190827, end: 20190827
  6. BESPONSA [Suspect]
     Active Substance: INOTUZUMAB OZOGAMICIN
     Dosage: 0.5 MG/M2, 1X/DAY, CYCLE 2
     Dates: start: 20190903, end: 20190903
  7. BESPONSA [Suspect]
     Active Substance: INOTUZUMAB OZOGAMICIN
     Dosage: 0.5 MG/M2, 1X/DAY, CYCLE 3
     Dates: start: 20190917, end: 20190917
  8. BESPONSA [Suspect]
     Active Substance: INOTUZUMAB OZOGAMICIN
     Dosage: 0.5 MG/M2, 1X/DAY, CYCLE 3
     Dates: start: 20190924, end: 20190924
  9. BESPONSA [Suspect]
     Active Substance: INOTUZUMAB OZOGAMICIN
     Dosage: 0.5 MG/M2, 1X/DAY, CYCLE 3
     Dates: start: 20191002, end: 20191002
  10. BESPONSA [Suspect]
     Active Substance: INOTUZUMAB OZOGAMICIN
     Dosage: 0.5 MG/M2, 1X/DAY, CYCLE 4
     Dates: start: 20191016, end: 20191016
  11. BESPONSA [Suspect]
     Active Substance: INOTUZUMAB OZOGAMICIN
     Dosage: 0.5 MG/M2, 1X/DAY, CYCLE 4
     Dates: start: 20191023, end: 20191023
  12. BESPONSA [Suspect]
     Active Substance: INOTUZUMAB OZOGAMICIN
     Dosage: 0.5 MG/M2, 1X/DAY, CYCLE 4
     Dates: start: 20191030, end: 20191030
  13. METHOTREXATE [Concomitant]
     Active Substance: METHOTREXATE
     Indication: Acute lymphocytic leukaemia recurrent
     Dosage: UNK
     Route: 037
     Dates: start: 20190813
  14. CYTARABINE [Concomitant]
     Active Substance: CYTARABINE
     Indication: Acute lymphocytic leukaemia recurrent
     Dosage: UNK
     Route: 037
     Dates: start: 20190813
  15. PREDNISOLONE [Concomitant]
     Active Substance: PREDNISOLONE
     Indication: Acute lymphocytic leukaemia recurrent
     Dosage: UNK
     Route: 037
     Dates: start: 20190813

REACTIONS (5)
  - Neoplasm progression [Fatal]
  - Haemophagocytic lymphohistiocytosis [Unknown]
  - Cerebellar haemorrhage [Not Recovered/Not Resolved]
  - Interstitial lung disease [Unknown]
  - Bronchopulmonary aspergillosis [Not Recovered/Not Resolved]

NARRATIVE: CASE EVENT DATE: 20190902
